FAERS Safety Report 5692253-7 (Version None)
Quarter: 2008Q2

REPORT INFORMATION
  Report Type: 
  Country: None (occurrence: None)
  Receive Date: 20080328
  Receipt Date: 20070522
  Transmission Date: 20081010
  Serious: Yes (Other)
  Sender: FDA-Public Use
  Company Number: PHEH2007US06187

PATIENT
  Age: 53 Year
  Sex: Female
  Weight: 72.6 kg

DRUGS (1)
  1. VIVELLE-DOT [Suspect]
     Indication: HYSTERECTOMY
     Dosage: 0.375 MG/TWICE  DAILY, TRANSDERMAL
     Route: 062
     Dates: start: 20051012

REACTIONS (4)
  - DEPRESSION [None]
  - FEELING ABNORMAL [None]
  - NAUSEA [None]
  - VOMITING [None]
